FAERS Safety Report 4294063-4 (Version None)
Quarter: 2004Q1

REPORT INFORMATION
  Report Type: 
  Country: None (occurrence: None)
  Receive Date: 20040211
  Receipt Date: 20040128
  Transmission Date: 20041129
  Serious: No
  Sender: FDA-Public Use
  Company Number: CA-SHR-04-019714

PATIENT
  Sex: Female

DRUGS (13)
  1. CAMPATH [Suspect]
     Indication: DIABETES MELLITUS INSULIN-DEPENDENT
     Dosage: 2 DOSES
     Dates: start: 20030203, end: 20030204
  2. CAMPATH [Suspect]
     Indication: PANCREAS ISLET CELL TRANSPLANT
     Dosage: 2 DOSES
     Dates: start: 20030203, end: 20030204
  3. CAMPATH [Suspect]
     Indication: DIABETES MELLITUS INSULIN-DEPENDENT
     Dosage: 2 DOSES
     Dates: start: 20030509, end: 20030509
  4. CAMPATH [Suspect]
     Indication: PANCREAS ISLET CELL TRANSPLANT
     Dosage: 2 DOSES
     Dates: start: 20030509, end: 20030509
  5. INFLIXIMAB(INFLIXIMAB) [Suspect]
     Dosage: 10 MG/KG
  6. SIROLIMUS(SIROLIMUS) [Suspect]
     Dosage: 5 MG, 1X/DAY
  7. TACROLIMUS (TACROLIMUS) [Concomitant]
  8. FERROUS GLUCONATE (FERROUS GLUCONATE) [Concomitant]
  9. ATORVASTATIN CALCIUM [Concomitant]
  10. PROZAC [Concomitant]
  11. IRBESARTAN (IRBESARTAN) [Concomitant]
  12. COVERSYL (PERINIDOPRIL) [Concomitant]
  13. CALCIUM (CALCIUM) [Concomitant]

REACTIONS (1)
  - OVARIAN CYST [None]
